FAERS Safety Report 10975153 (Version 1)
Quarter: 2015Q2

REPORT INFORMATION
  Report Type: Spontaneous
  Country: US (occurrence: US)
  Receive Date: 20150401
  Receipt Date: 20150401
  Transmission Date: 20150821
  Serious: No
  Sender: FDA-Public Use
  Company Number: US-PFIZER INC-2015107583

PATIENT
  Age: 58 Year
  Sex: Female

DRUGS (8)
  1. CYTOMEL [Suspect]
     Active Substance: LIOTHYRONINE SODIUM
     Indication: AUTOIMMUNE THYROIDITIS
     Dosage: 25 ?G, 4X/DAY
     Route: 048
  2. NORVASC [Concomitant]
     Active Substance: AMLODIPINE BESYLATE
     Dosage: 0.5 MG, 1X/DAY
  3. ZANTAC [Concomitant]
     Active Substance: RANITIDINE HYDROCHLORIDE
     Dosage: UNK, 1X/DAY (IN MORNING)
  4. ZYRTEC [Concomitant]
     Active Substance: CETIRIZINE HYDROCHLORIDE
     Dosage: UNK
  5. NITROGLYCERIN. [Concomitant]
     Active Substance: NITROGLYCERIN
     Dosage: UNK
  6. PEPCID [Concomitant]
     Active Substance: FAMOTIDINE
     Dosage: UNK (IN NIGHT)
  7. NITROSTAT [Concomitant]
     Active Substance: NITROGLYCERIN
     Dosage: UNK, AS NEEDED
  8. KETOTIFEN [Concomitant]
     Active Substance: KETOTIFEN
     Dosage: 1 MG, 4X/DAY

REACTIONS (13)
  - Pharyngeal oedema [Unknown]
  - Product taste abnormal [Unknown]
  - Photosensitivity reaction [Unknown]
  - Memory impairment [Unknown]
  - Blood pressure abnormal [Unknown]
  - Expired product administered [Unknown]
  - Dry skin [Unknown]
  - Sluggishness [Unknown]
  - Drug ineffective [Unknown]
  - Blood thyroid stimulating hormone abnormal [Unknown]
  - Feeling abnormal [Unknown]
  - Malabsorption [Unknown]
  - Weight increased [Unknown]
